FAERS Safety Report 4938873-6 (Version None)
Quarter: 2006Q1

REPORT INFORMATION
  Report Type: 
  Country: None (occurrence: None)
  Receive Date: 20060309
  Receipt Date: 20050718
  Transmission Date: 20060701
  Serious: Yes (Hospitalization, Disabling)
  Sender: FDA-Public Use
  Company Number: US-MERCK-0507USA02863

PATIENT
  Age: 43 Year
  Sex: Female
  Weight: 100 kg

DRUGS (9)
  1. VIOXX [Suspect]
     Indication: PAIN
     Route: 048
     Dates: start: 19990101, end: 20040701
  2. VIOXX [Suspect]
     Route: 048
     Dates: start: 19990101, end: 20040701
  3. ALLEGRA [Concomitant]
     Route: 065
  4. FLEXERIL [Concomitant]
     Route: 048
  5. CLARITIN-D [Concomitant]
     Route: 065
  6. ZAROXOLYN [Concomitant]
     Route: 065
  7. ZANAFLEX [Concomitant]
     Route: 065
  8. NASONEX [Concomitant]
     Route: 065
  9. FLONASE [Concomitant]
     Route: 065

REACTIONS (16)
  - ASTHENIA [None]
  - CARDIAC MURMUR [None]
  - CERVICAL MYELOPATHY [None]
  - CHEST PAIN [None]
  - FACET JOINT SYNDROME [None]
  - GASTROOESOPHAGEAL REFLUX DISEASE [None]
  - HYPOTHYROIDISM [None]
  - INJURY [None]
  - INTERVERTEBRAL DISC DEGENERATION [None]
  - NECK PAIN [None]
  - RENAL DISORDER [None]
  - SINUS DISORDER [None]
  - SINUS POLYP [None]
  - SPINAL COLUMN STENOSIS [None]
  - TRANSIENT ISCHAEMIC ATTACK [None]
  - VASCULITIS [None]
